FAERS Safety Report 4949547-X (Version None)
Quarter: 2006Q1

REPORT INFORMATION
  Report Type: 
  Country: None (occurrence: None)
  Receive Date: 20060316
  Receipt Date: 20060308
  Transmission Date: 20060701
  Serious: Yes (Other)
  Sender: FDA-Public Use
  Company Number: 2006033004

PATIENT
  Sex: Female

DRUGS (1)
  1. LISTERINE (MENTHOL, METHYL SALICYLATE,  EUCALYPTOL, THYMOL) [Suspect]
     Dosage: 2/3 OF A 1 LITER BOTTLE ONCE, ORAL
     Route: 048
     Dates: start: 20060308, end: 20060308

REACTIONS (2)
  - ALCOHOL POISONING [None]
  - INTENTIONAL DRUG MISUSE [None]
